FAERS Safety Report 23921046 (Version 1)
Quarter: 2024Q2

REPORT INFORMATION
  Report Type: Spontaneous
  Country: US (occurrence: None)
  Receive Date: 20240529
  Receipt Date: 20240529
  Transmission Date: 20240716
  Serious: Yes (Disabling)
  Sender: FDA-Public Use
  Company Number: None

PATIENT
  Age: 63 Year
  Sex: Female
  Weight: 52.65 kg

DRUGS (6)
  1. CIPROFLOXACIN [Suspect]
     Active Substance: CIPROFLOXACIN
     Indication: Sinusitis
     Dosage: OTHER QUANTITY : 1 CAPSULE(S);?FREQUENCY : TWICE A DAY;?
     Route: 048
     Dates: start: 20070224, end: 20070226
  2. Wheekchair [Concomitant]
  3. walker [Concomitant]
  4. braces for knees and ankles [Concomitant]
  5. HERBALS [Concomitant]
     Active Substance: HERBALS
  6. ADVIL [Concomitant]
     Active Substance: IBUPROFEN\IBUPROFEN SODIUM

REACTIONS (25)
  - Therapy cessation [None]
  - Insomnia [None]
  - Headache [None]
  - Balance disorder [None]
  - Fatigue [None]
  - Visual impairment [None]
  - Deafness [None]
  - Vibration syndrome [None]
  - Neuralgia [None]
  - Myoclonus [None]
  - Rhabdomyolysis [None]
  - Gastrointestinal disorder [None]
  - Liver injury [None]
  - Connective tissue disorder [None]
  - Amnesia [None]
  - Speech disorder [None]
  - Dysphagia [None]
  - Fall [None]
  - Spinal fracture [None]
  - Femur fracture [None]
  - Craniofacial fracture [None]
  - Wrist fracture [None]
  - Migraine [None]
  - Amyotrophic lateral sclerosis [None]
  - Upper motor neurone lesion [None]

NARRATIVE: CASE EVENT DATE: 20070224
